FAERS Safety Report 7880641-X (Version None)
Quarter: 2011Q4

REPORT INFORMATION
  Report Type: 
  Country: None (occurrence: None)
  Receive Date: 20111101
  Receipt Date: 20111025
  Transmission Date: 20120403
  Serious: Yes (Death)
  Sender: FDA-Public Use
  Company Number: LB-BAYER-2011-103142

PATIENT
  Age: 88 Year
  Sex: Male
  Weight: 55 kg

DRUGS (1)
  1. AVELOX [Suspect]
     Dosage: 400 MG, UNK
     Dates: start: 20101102, end: 20101109

REACTIONS (1)
  - DEATH [None]
